FAERS Safety Report 9771783 (Version 1)
Quarter: 2013Q4

REPORT INFORMATION
  Report Type: Spontaneous
  Country: FR (occurrence: FR)
  Receive Date: 20131219
  Receipt Date: 20131219
  Transmission Date: 20140711
  Serious: Yes (Other)
  Sender: FDA-Public Use
  Company Number: FR-ROCHE-1322137

PATIENT
  Age: 86 Year
  Sex: Male

DRUGS (5)
  1. ROCEPHINE [Suspect]
     Indication: ARTHRITIS BACTERIAL
     Route: 041
     Dates: start: 20131017, end: 20131018
  2. PREVISCAN (FRANCE) [Suspect]
     Indication: PRODUCT USED FOR UNKNOWN INDICATION
     Route: 048
     Dates: end: 20131018
  3. CIFLOX (FRANCE) [Suspect]
     Indication: ARTHRITIS BACTERIAL
     Route: 041
     Dates: start: 20131017, end: 20131018
  4. AUGMENTIN [Suspect]
     Indication: ARTHRITIS BACTERIAL
     Route: 048
     Dates: start: 20131016, end: 20131017
  5. LOVENOX [Concomitant]

REACTIONS (1)
  - International normalised ratio increased [Recovered/Resolved]
